FAERS Safety Report 19479069 (Version 1)
Quarter: 2021Q2

REPORT INFORMATION
  Report Type: Spontaneous
  Country: GB (occurrence: GB)
  Receive Date: 20210630
  Receipt Date: 20210630
  Transmission Date: 20210717
  Serious: Yes (Other)
  Sender: FDA-Public Use
  Company Number: NVSC2021GB143121

PATIENT
  Age: 62 Year
  Sex: Female

DRUGS (2)
  1. TRAMETINIB [Suspect]
     Active Substance: TRAMETINIB
     Indication: CHOLANGIOCARCINOMA
     Dosage: 2 MG, QD
     Route: 048
     Dates: start: 201805
  2. DABRAFENIB [Suspect]
     Active Substance: DABRAFENIB
     Indication: CHOLANGIOCARCINOMA
     Dosage: 150 MG, BID
     Route: 048
     Dates: start: 201805

REACTIONS (3)
  - Product use in unapproved indication [Unknown]
  - Cholangiocarcinoma [Unknown]
  - Malignant neoplasm progression [Unknown]
